FAERS Safety Report 10271472 (Version 6)
Quarter: 2015Q1

REPORT INFORMATION
  Report Type: Spontaneous
  Country: US (occurrence: US)
  Receive Date: 20140701
  Receipt Date: 20150305
  Transmission Date: 20150720
  Serious: Yes (Other)
  Sender: FDA-Public Use
  Company Number: US-PFIZER INC-2014178493

PATIENT
  Age: 53 Year
  Sex: Female
  Weight: 65.76 kg

DRUGS (10)
  1. LYRICA [Suspect]
     Active Substance: PREGABALIN
     Indication: MULTIPLE SCLEROSIS
     Dosage: 100MG IN THE MORNING 175MG IN THE MIDDAY AND 100MG OR 175MG IN THE EVENING
     Route: 048
     Dates: start: 2008
  2. AMPYRA [Concomitant]
     Active Substance: DALFAMPRIDINE
     Dosage: 10 MG, 2X/DAY
     Route: 048
  3. LYRICA [Suspect]
     Active Substance: PREGABALIN
     Indication: PAIN
     Dosage: 100MG OR 175MG ,3X/DAY
     Dates: start: 200712
  4. ZOLPIDEM [Concomitant]
     Active Substance: ZOLPIDEM\ZOLPIDEM TARTRATE
     Dosage: 10 MG, 1X/DAY
     Route: 048
  5. FOSAMAX [Concomitant]
     Active Substance: ALENDRONATE SODIUM
     Dosage: UNK
  6. ATORVASTATIN [Concomitant]
     Active Substance: ATORVASTATIN
     Indication: BLOOD CHOLESTEROL ABNORMAL
     Dosage: 20 MG, 1X/DAY
     Route: 048
  7. LYRICA [Suspect]
     Active Substance: PREGABALIN
     Indication: NEUROMYELITIS OPTICA
     Dosage: 100 MG, 3X/DAY (75 MG, UP TO TWICE DAILY AS NEEDED )
     Route: 048
  8. HYDROCODONE [Concomitant]
     Active Substance: HYDROCODONE
     Indication: PAIN
     Dosage: ^10/325^ (1 OR 2 EVERY 4-6 HOURS) , AS NEEDED
  9. BUMEX [Concomitant]
     Active Substance: BUMETANIDE
     Indication: FLUID RETENTION
     Dosage: 2 MG, 2X/DAY
     Route: 048
  10. TYSABRI [Concomitant]
     Active Substance: NATALIZUMAB
     Indication: MULTIPLE SCLEROSIS
     Dosage: UNK

REACTIONS (5)
  - Multiple sclerosis [Unknown]
  - Somnolence [Unknown]
  - Drug effect incomplete [Unknown]
  - Cerebral atrophy [Unknown]
  - Disease progression [Unknown]

NARRATIVE: CASE EVENT DATE: 201408
